FAERS Safety Report 23560685 (Version 2)
Quarter: 2024Q1

REPORT INFORMATION
  Report Type: Spontaneous
  Country: US (occurrence: US)
  Receive Date: 20240223
  Receipt Date: 20240306
  Transmission Date: 20240410
  Serious: Yes (Other)
  Sender: FDA-Public Use
  Company Number: US-BAUSCHBL-2024BNL002133

PATIENT

DRUGS (4)
  1. PROPARACAINE HYDROCHLORIDE [Suspect]
     Active Substance: PROPARACAINE HYDROCHLORIDE
     Indication: Pupil dilation procedure
     Dosage: 1 TO 2 DROPS IN EACH EYE
     Route: 047
  2. PROPARACAINE HYDROCHLORIDE [Suspect]
     Active Substance: PROPARACAINE HYDROCHLORIDE
     Indication: Product use in unapproved indication
  3. DEVICE [Suspect]
     Active Substance: DEVICE
     Indication: Pupil dilation procedure
     Route: 047
  4. DEVICE [Suspect]
     Active Substance: DEVICE
     Indication: Product use in unapproved indication

REACTIONS (3)
  - Punctate keratitis [Unknown]
  - Product use in unapproved indication [Unknown]
  - Product quality issue [Unknown]
